FAERS Safety Report 4627285-0 (Version None)
Quarter: 2005Q2

REPORT INFORMATION
  Report Type: 
  Country: None (occurrence: None)
  Receive Date: 20050405
  Receipt Date: 20050221
  Transmission Date: 20051028
  Serious: Yes (Death)
  Sender: FDA-Public Use
  Company Number: GB-BOEHRINGER INGELHEIM PHARMACEUTICALS, INC.-2005-UK-00281UK

PATIENT
  Sex: Male

DRUGS (7)
  1. SPIRIVA [Suspect]
     Route: 055
  2. DOTHIEPIN HYDROCHLORIDE [Concomitant]
  3. BENDROFLUAZIDE [Concomitant]
  4. CALCICHEW D3 FORTE [Concomitant]
  5. SALBUTAMOL CFC-FREE INHALER [Concomitant]
  6. BECLOMETHASONE [Concomitant]
  7. SALMETEROL [Concomitant]

REACTIONS (3)
  - CHRONIC OBSTRUCTIVE PULMONARY DISEASE [None]
  - LOWER RESPIRATORY TRACT INFECTION [None]
  - PULMONARY TUBERCULOSIS [None]
